FAERS Safety Report 20013568 (Version 1)
Quarter: 2021Q4

REPORT INFORMATION
  Report Type: Spontaneous
  Country: DE (occurrence: DE)
  Receive Date: 20211029
  Receipt Date: 20211029
  Transmission Date: 20220304
  Serious: Yes (Hospitalization, Other)
  Sender: FDA-Public Use
  Company Number: DE-INCYTE CORPORATION-2021IN009774

PATIENT
  Sex: Female

DRUGS (9)
  1. ICLUSIG [Suspect]
     Active Substance: PONATINIB
     Indication: Philadelphia positive chronic myeloid leukaemia
     Dosage: 30 MILLIGRAM
     Route: 065
     Dates: start: 20180414, end: 20180423
  2. ICLUSIG [Suspect]
     Active Substance: PONATINIB
     Dosage: 45 MILLIGRAM
     Route: 065
     Dates: start: 20180424, end: 20181120
  3. ICLUSIG [Suspect]
     Active Substance: PONATINIB
     Dosage: 45 MILLIGRAM
     Route: 065
     Dates: start: 201811
  4. HYDROXYUREA [Concomitant]
     Active Substance: HYDROXYUREA
     Dosage: 1500 MILLIGRAM
     Route: 065
     Dates: start: 20180406, end: 20180414
  5. HYDROXYUREA [Concomitant]
     Active Substance: HYDROXYUREA
     Dosage: UNK
     Route: 065
     Dates: start: 20181102
  6. HYDROXYUREA [Concomitant]
     Active Substance: HYDROXYUREA
     Dosage: 1 GRAM, BID
     Route: 065
     Dates: start: 20181213
  7. HYDROXYUREA [Concomitant]
     Active Substance: HYDROXYUREA
     Dosage: 500 MILLIGRAM
     Route: 065
     Dates: start: 20181227, end: 20190105
  8. DECITABINE [Concomitant]
     Active Substance: DECITABINE
     Dosage: UNK
     Route: 065
     Dates: start: 20181112
  9. DECITABINE [Concomitant]
     Active Substance: DECITABINE
     Dosage: UNK
     Route: 065
     Dates: start: 20181217

REACTIONS (1)
  - Pulmonary sepsis [Unknown]
